FAERS Safety Report 4941207-4 (Version None)
Quarter: 2006Q1

REPORT INFORMATION
  Report Type: 
  Country: None (occurrence: None)
  Receive Date: 20060313
  Receipt Date: 20060221
  Transmission Date: 20060701
  Serious: Yes (Hospitalization)
  Sender: FDA-Public Use
  Company Number: 2006UW02948

PATIENT
  Age: 17311 Day
  Sex: Female
  Weight: 108.2 kg

DRUGS (4)
  1. CRESTOR [Suspect]
     Indication: BLOOD CHOLESTEROL INCREASED
     Route: 048
     Dates: start: 20050204, end: 20060215
  2. OXYCONTIN [Concomitant]
  3. NEURONTIN [Concomitant]
  4. AVALIDE [Concomitant]
     Indication: HYPERTENSION

REACTIONS (1)
  - RHABDOMYOLYSIS [None]
